FAERS Safety Report 4634536-5 (Version None)
Quarter: 2005Q2

REPORT INFORMATION
  Report Type: 
  Country: None (occurrence: None)
  Receive Date: 20050413
  Receipt Date: 20050112
  Transmission Date: 20051028
  Serious: Yes (Other)
  Sender: FDA-Public Use
  Company Number: US-MERCK-0503USA03352

PATIENT
  Age: 17 Year

DRUGS (1)
  1. VIOXX [Suspect]
     Indication: MIGRAINE WITH AURA
     Route: 048

REACTIONS (1)
  - CEREBROVASCULAR ACCIDENT [None]
